FAERS Safety Report 18529571 (Version 1)
Quarter: 2020Q4

REPORT INFORMATION
  Report Type: Spontaneous
  Country: US (occurrence: US)
  Receive Date: 20201120
  Receipt Date: 20201120
  Transmission Date: 20210114
  Serious: Yes (Other)
  Sender: FDA-Public Use
  Company Number: US-NOVOPROD-714255

PATIENT
  Age: 69 Year
  Sex: Female

DRUGS (3)
  1. NOVOLOG [Suspect]
     Active Substance: INSULIN ASPART
     Indication: DIABETES MELLITUS
     Dosage: 3 TIMES A DAY; AFTERNOON DOSE PRIOR TO LUNCH 8 UNITS
     Route: 058
  2. NOVOLOG [Suspect]
     Active Substance: INSULIN ASPART
     Dosage: 3 TIMES A DAY; AFTERNOON DOSE PRIOR TO LUNCH 5 UNITS
     Route: 058
  3. NOVOLOG [Suspect]
     Active Substance: INSULIN ASPART
     Dosage: 3 TIMES A DAY; AFTERNOON DOSE PRIOR TO LUNCH 6 UNITS
     Route: 058

REACTIONS (3)
  - Blood glucose decreased [Unknown]
  - Panic attack [Unknown]
  - Stress [Unknown]

NARRATIVE: CASE EVENT DATE: 20200106
